FAERS Safety Report 8475008-X (Version None)
Quarter: 2012Q2

REPORT INFORMATION
  Report Type: 
  Country: None (occurrence: None)
  Receive Date: 20120628
  Receipt Date: 20120619
  Transmission Date: 20120825
  Serious: Yes (Hospitalization)
  Sender: FDA-Public Use
  Company Number: US-BAYER-2012-061004

PATIENT
  Age: 38 Year
  Sex: Female
  Weight: 78.912 kg

DRUGS (2)
  1. YAZ [Suspect]
     Indication: ACNE
  2. YAZ [Suspect]
     Indication: CONTRACEPTION
     Dosage: UNK
     Dates: start: 20090910, end: 20100503

REACTIONS (10)
  - MUSCULOSKELETAL PAIN [None]
  - BACK PAIN [None]
  - PAIN [None]
  - DYSPNOEA [None]
  - ABDOMINAL PAIN [None]
  - CHOLELITHIASIS [None]
  - INJURY [None]
  - VENA CAVA THROMBOSIS [None]
  - CHEST PAIN [None]
  - PULMONARY EMBOLISM [None]
